FAERS Safety Report 7127706-8 (Version None)
Quarter: 2010Q4

REPORT INFORMATION
  Report Type: 
  Country: None (occurrence: None)
  Receive Date: 20101130
  Receipt Date: 20101116
  Transmission Date: 20110411
  Serious: Yes (Hospitalization)
  Sender: FDA-Public Use
  Company Number: US-BIOGENIDEC-2010BI034784

PATIENT
  Age: 51 Year
  Sex: Female

DRUGS (2)
  1. TYSABRI [Suspect]
     Indication: MULTIPLE SCLEROSIS
     Route: 042
     Dates: start: 20090721, end: 20100701
  2. TYSABRI [Suspect]
     Route: 042
     Dates: start: 20100901

REACTIONS (4)
  - FACIAL BONES FRACTURE [None]
  - FALL [None]
  - MULTIPLE SCLEROSIS RELAPSE [None]
  - TRIGEMINAL NEURALGIA [None]
